FAERS Safety Report 7364578-0 (Version None)
Quarter: 2011Q1

REPORT INFORMATION
  Report Type: 
  Country: None (occurrence: None)
  Receive Date: 20110316
  Receipt Date: 20110316
  Transmission Date: 20110831
  Serious: Yes (Other)
  Sender: FDA-Public Use
  Company Number: None

PATIENT
  Sex: Female
  Weight: 52.1637 kg

DRUGS (4)
  1. SYNTHROID [Concomitant]
  2. SILDEC PE-DM 15-12 SILA PHYSICIANS TOTAL CARE, INC [Suspect]
     Indication: COUGH
     Dosage: 1 TSP EVERY 4 HR ORAL
     Route: 048
     Dates: start: 20110218, end: 20110218
  3. NORVASC [Concomitant]
  4. TOPRAL [Concomitant]

REACTIONS (5)
  - DIARRHOEA [None]
  - VOMITING [None]
  - MUSCLE SPASMS [None]
  - ABDOMINAL PAIN UPPER [None]
  - DEHYDRATION [None]
